FAERS Safety Report 7584241-0 (Version None)
Quarter: 2011Q2

REPORT INFORMATION
  Report Type: 
  Country: None (occurrence: None)
  Receive Date: 20110531
  Receipt Date: 20110321
  Transmission Date: 20111010
  Serious: Yes (Other)
  Sender: FDA-Public Use
  Company Number: 2011CP000038

PATIENT
  Age: 65 Year
  Sex: Male

DRUGS (1)
  1. OFIRMEV [Suspect]
     Indication: PAIN
     Dosage: 2 GM;IV
     Route: 042
     Dates: start: 20110317, end: 20110317

REACTIONS (1)
  - HYPOTENSION [None]
